FAERS Safety Report 14765360 (Version 1)
Quarter: 2018Q2

REPORT INFORMATION
  Report Type: Report from Study
  Country: US (occurrence: US)
  Receive Date: 20180416
  Receipt Date: 20180416
  Transmission Date: 20180711
  Serious: Yes (Hospitalization, Other)
  Sender: FDA-Public Use
  Company Number: US-TEVA-2018-US-880532

PATIENT
  Age: 46 Year

DRUGS (1)
  1. COPAXONE [Suspect]
     Active Substance: GLATIRAMER ACETATE
     Indication: MULTIPLE SCLEROSIS
     Route: 058
     Dates: start: 20160412, end: 20180201

REACTIONS (10)
  - Seizure [Unknown]
  - Multiple sclerosis relapse [Unknown]
  - Nightmare [Unknown]
  - Overdose [Unknown]
  - Progressive relapsing multiple sclerosis [Unknown]
  - Muscle spasms [Unknown]
  - Myalgia [Unknown]
  - Balance disorder [Unknown]
  - Tremor [Unknown]
  - Speech disorder [Unknown]

NARRATIVE: CASE EVENT DATE: 201703
